FAERS Safety Report 23764231 (Version 1)
Quarter: 2024Q2

REPORT INFORMATION
  Report Type: Report from Study
  Country: CA (occurrence: CA)
  Receive Date: 20240420
  Receipt Date: 20240420
  Transmission Date: 20240716
  Serious: Yes (Hospitalization, Other)
  Sender: FDA-Public Use
  Company Number: CA-ABBVIE-5723238

PATIENT
  Age: 72 Year
  Sex: Female

DRUGS (1)
  1. RINVOQ [Suspect]
     Active Substance: UPADACITINIB
     Indication: Product used for unknown indication
     Dosage: FORM STRENGTH UNITS: 15 MILLIGRAM
     Route: 048

REACTIONS (2)
  - Chronic obstructive pulmonary disease [Unknown]
  - Choking [Unknown]

NARRATIVE: CASE EVENT DATE: 20240326
